FAERS Safety Report 10190465 (Version 1)
Quarter: 2014Q2

REPORT INFORMATION
  Report Type: Spontaneous
  Country: US (occurrence: US)
  Receive Date: 20140522
  Receipt Date: 20140522
  Transmission Date: 20141212
  Serious: No
  Sender: FDA-Public Use
  Company Number: US-B.I. PHARMACEUTICALS,INC./RIDGEFIELD-2014-BI-21054BP

PATIENT
  Age: 56 Year
  Sex: Male
  Weight: 125 kg

DRUGS (4)
  1. TRADJENTA [Suspect]
     Indication: TYPE 2 DIABETES MELLITUS
     Dosage: 5 MG
     Route: 048
     Dates: start: 20140502
  2. METFORMIN [Concomitant]
     Indication: TYPE 2 DIABETES MELLITUS
     Dosage: 2000 MG
     Route: 048
  3. CARVEDILOL [Concomitant]
     Indication: HYPERTENSION
     Dosage: 50 MG
     Route: 048
  4. HYDROCODONE [Concomitant]
     Indication: PAIN
     Dosage: 40 MG
     Route: 048

REACTIONS (1)
  - Vision blurred [Not Recovered/Not Resolved]
